FAERS Safety Report 24412115 (Version 1)
Quarter: 2024Q4

REPORT INFORMATION
  Report Type: Spontaneous
  Country: US (occurrence: US)
  Receive Date: 20241008
  Receipt Date: 20241008
  Transmission Date: 20250115
  Serious: Yes (Hospitalization)
  Sender: MYLAN
  Company Number: US-MYLANLABS-2024M1090300

PATIENT
  Age: 46 Year
  Sex: Male

DRUGS (10)
  1. DEXMEDETOMIDINE [Suspect]
     Active Substance: DEXMEDETOMIDINE
     Indication: Delirium tremens
     Dosage: UNK; INITIAL DOSE NOT STATED
     Route: 065
  2. DEXMEDETOMIDINE [Suspect]
     Active Substance: DEXMEDETOMIDINE
     Dosage: 1.6 MICROGRAM/KILOGRAM, QH; DOSE WAS INCREASED HERE
     Route: 065
  3. DEXMEDETOMIDINE [Suspect]
     Active Substance: DEXMEDETOMIDINE
     Dosage: UNK; DEXMEDETOMIDINE INFUSION AND LORAZEPAM INFUSION DOSE WERE DECREASED
     Route: 065
  4. PHENYTOIN [Suspect]
     Active Substance: PHENYTOIN
     Indication: Delirium tremens
     Dosage: 10 MILLIGRAM/KILOGRAM; LOADING DOSE
     Route: 065
  5. PHENYTOIN [Suspect]
     Active Substance: PHENYTOIN
     Dosage: 260 MILLIGRAM, Q8H
     Route: 065
  6. THIAMINE [Suspect]
     Active Substance: THIAMINE
     Indication: Delirium tremens
     Dosage: UNK
     Route: 065
  7. LORAZEPAM [Suspect]
     Active Substance: LORAZEPAM
     Indication: Delirium tremens
     Dosage: UNK
     Route: 065
  8. LORAZEPAM [Suspect]
     Active Substance: LORAZEPAM
     Dosage: UNK; LORAZEPAM INFUSION DOSE WERE DECREASED
     Route: 065
  9. PROPOFOL [Suspect]
     Active Substance: PROPOFOL
     Indication: Delirium tremens
     Dosage: UNK
     Route: 065
  10. MIDAZOLAM [Suspect]
     Active Substance: MIDAZOLAM
     Indication: Delirium tremens
     Dosage: UNK
     Route: 065

REACTIONS (3)
  - Rebound effect [Unknown]
  - Delirium tremens [Unknown]
  - Drug ineffective [Unknown]
